FAERS Safety Report 13268900 (Version 1)
Quarter: 2017Q1

REPORT INFORMATION
  Report Type: Report from Study
  Country: JP (occurrence: JP)
  Receive Date: 20170224
  Receipt Date: 20170224
  Transmission Date: 20170428
  Serious: Yes (Hospitalization)
  Sender: FDA-Public Use
  Company Number: JP-EISAI MEDICAL RESEARCH-EC-2017-025174

PATIENT
  Age: 44 Year
  Sex: Female
  Weight: 53 kg

DRUGS (22)
  1. HALAVEN [Suspect]
     Active Substance: ERIBULIN MESYLATE
     Indication: INVASIVE BREAST CARCINOMA
     Route: 041
     Dates: start: 20150622, end: 20150803
  2. HALAVEN [Suspect]
     Active Substance: ERIBULIN MESYLATE
     Route: 041
     Dates: start: 20150831, end: 20150831
  3. FENTOS [Concomitant]
     Active Substance: FENTANYL
  4. CONSTAN [Concomitant]
     Active Substance: ALPRAZOLAM
  5. GLYCYRON [Concomitant]
     Active Substance: AMMONIUM GLYCYRRHIZATE\GLYCINE\METHIONINE
  6. LOXOPROFEN [Concomitant]
     Active Substance: LOXOPROFEN
  7. REBAMIPIDE [Concomitant]
     Active Substance: REBAMIPIDE
  8. METHYCOBAL [Concomitant]
     Active Substance: METHYLCOBALAMIN
  9. TERPERAN [Concomitant]
     Active Substance: METOCLOPRAMIDE HYDROCHLORIDE
  10. MAGNESIUM OXIDE. [Concomitant]
     Active Substance: MAGNESIUM OXIDE
  11. TERPERAN [Concomitant]
     Active Substance: METOCLOPRAMIDE HYDROCHLORIDE
  12. TERPERAN [Concomitant]
     Active Substance: METOCLOPRAMIDE HYDROCHLORIDE
  13. DENOTAS [Concomitant]
     Active Substance: CALCIUM CARBONATE\CHOLECALCIFEROL\MAGNESIUM CARBONATE
  14. JANUVIA [Concomitant]
     Active Substance: SITAGLIPTIN PHOSPHATE
  15. EVAMYL [Concomitant]
     Active Substance: LORMETAZEPAM
  16. CALONAL [Concomitant]
     Active Substance: ACETAMINOPHEN
  17. PYDOXAL [Concomitant]
     Active Substance: PYRIDOXAL
  18. NEXIUM [Concomitant]
     Active Substance: ESOMEPRAZOLE MAGNESIUM
  19. HALAVEN [Suspect]
     Active Substance: ERIBULIN MESYLATE
     Route: 041
     Dates: start: 20150914
  20. RANMARK [Concomitant]
     Active Substance: DENOSUMAB
  21. CERCINE [Concomitant]
     Active Substance: DIAZEPAM
  22. ABSTRAL [Concomitant]
     Active Substance: FENTANYL CITRATE

REACTIONS (2)
  - Disseminated intravascular coagulation [Recovered/Resolved]
  - Neutropenia [Recovered/Resolved]

NARRATIVE: CASE EVENT DATE: 20150810
